FAERS Safety Report 10533348 (Version 1)
Quarter: 2014Q4

REPORT INFORMATION
  Report Type: Spontaneous
  Country: US (occurrence: None)
  Receive Date: 20141021
  Receipt Date: 20141021
  Transmission Date: 20150529
  Serious: No
  Sender: FDA-Public Use
  Company Number: None

PATIENT
  Age: 78 Year
  Sex: Female

DRUGS (1)
  1. FORTEO [Suspect]
     Active Substance: TERIPARATIDE
     Indication: SENILE OSTEOPOROSIS
     Dosage: 20 MCG DAILY SC
     Route: 058
     Dates: start: 20140523

REACTIONS (4)
  - Weight increased [None]
  - Vision blurred [None]
  - Ocular icterus [None]
  - Nausea [None]
